FAERS Safety Report 25200459 (Version 1)
Quarter: 2025Q2

REPORT INFORMATION
  Report Type: Spontaneous
  Country: KR (occurrence: KR)
  Receive Date: 20250415
  Receipt Date: 20250415
  Transmission Date: 20250716
  Serious: Yes (Other)
  Sender: UCB
  Company Number: KR-UCBSA-2025020505

PATIENT
  Sex: Female
  Weight: 55 kg

DRUGS (1)
  1. KEPPRA [Suspect]
     Active Substance: LEVETIRACETAM
     Indication: Thrombocytopenia
     Dosage: 5 DOSAGE FORM, 2X/DAY (BID)
     Route: 048
     Dates: start: 20240501, end: 20240529

REACTIONS (2)
  - Thrombocytopenia [Not Recovered/Not Resolved]
  - Hyponatraemia [Not Recovered/Not Resolved]

NARRATIVE: CASE EVENT DATE: 20240529
